FAERS Safety Report 19163547 (Version 1)
Quarter: 2021Q2

REPORT INFORMATION
  Report Type: Spontaneous
  Country: JP (occurrence: JP)
  Receive Date: 20210421
  Receipt Date: 20210421
  Transmission Date: 20210717
  Serious: Yes (Death, Other)
  Sender: FDA-Public Use
  Company Number: JP-SUN PHARMACEUTICAL INDUSTRIES LTD-2021R1-292368

PATIENT
  Age: 74 Year
  Sex: Male

DRUGS (2)
  1. CARBOPLATIN. [Suspect]
     Active Substance: CARBOPLATIN
     Indication: ECCRINE CARCINOMA
     Dosage: UNK ((AREA UNDER THE CURVE, 5 MG/ML PER MIN; EVERY 4 WEEKS)
     Route: 065
  2. EPIRUBICIN [Suspect]
     Active Substance: EPIRUBICIN
     Indication: ECCRINE CARCINOMA
     Dosage: UNK ((60 MG/M2; EVERY 4 WEEKS)
     Route: 065

REACTIONS (3)
  - Therapeutic response decreased [Unknown]
  - Cardiotoxicity [Unknown]
  - Metastases to central nervous system [Fatal]
